FAERS Safety Report 4575029-3 (Version None)
Quarter: 2005Q1

REPORT INFORMATION
  Report Type: 
  Country: None (occurrence: None)
  Receive Date: 20050208
  Receipt Date: 20050124
  Transmission Date: 20050727
  Serious: Yes (Death, Hospitalization)
  Sender: FDA-Public Use
  Company Number: NL-AMGEN-UK109940

PATIENT
  Age: 73 Year
  Sex: Female

DRUGS (2)
  1. ARANESP [Suspect]
     Indication: RENAL FAILURE CHRONIC
     Route: 065
  2. EPOETIN ALFA [Suspect]
     Route: 058

REACTIONS (7)
  - ANTI-ERYTHROPOIETIN ANTIBODY POSITIVE [None]
  - BONE MARROW DEPRESSION [None]
  - DIABETES MELLITUS INADEQUATE CONTROL [None]
  - DRUG INEFFECTIVE [None]
  - GENERAL PHYSICAL HEALTH DETERIORATION [None]
  - NORMOCHROMIC NORMOCYTIC ANAEMIA [None]
  - SEPTIC SHOCK [None]
